FAERS Safety Report 4344088-5 (Version None)
Quarter: 2004Q2

REPORT INFORMATION
  Report Type: 
  Country: None (occurrence: None)
  Receive Date: 20040422
  Receipt Date: 20040412
  Transmission Date: 20050107
  Serious: Yes (Hospitalization)
  Sender: FDA-Public Use
  Company Number: JP-GLAXOSMITHKLINE-B0329980A

PATIENT
  Age: 56 Year
  Sex: Male

DRUGS (4)
  1. ZANTAC [Suspect]
     Dosage: 50MG PER DAY
     Route: 042
     Dates: start: 20031110, end: 20040412
  2. DECADRON [Concomitant]
     Dosage: 8MG PER DAY
     Route: 042
     Dates: start: 20031110, end: 20040405
  3. RESTAMIN [Concomitant]
     Dosage: 50MG PER DAY
     Route: 048
     Dates: start: 20031110, end: 20040412
  4. TAXOL [Concomitant]
     Dosage: 90MG PER DAY
     Route: 042
     Dates: start: 20031110, end: 20040405

REACTIONS (1)
  - ANAPHYLACTIC SHOCK [None]
